FAERS Safety Report 9586358 (Version 1)
Quarter: 2013Q4

REPORT INFORMATION
  Report Type: Spontaneous
  Country: US (occurrence: US)
  Receive Date: 20131003
  Receipt Date: 20131003
  Transmission Date: 20140711
  Serious: Yes (Death, Hospitalization)
  Sender: FDA-Public Use
  Company Number: US-B.I. PHARMACEUTICALS,INC./RIDGEFIELD-2013-BI-30693BP

PATIENT
  Age: 59 Year
  Sex: Female

DRUGS (8)
  1. SPIRIVA [Suspect]
     Indication: ASTHMA
     Dosage: 18 MCG
     Route: 055
     Dates: start: 200904, end: 20130404
  2. SPIRIVA [Suspect]
     Indication: CHRONIC OBSTRUCTIVE PULMONARY DISEASE
  3. FLONASE [Concomitant]
     Dosage: FORMULATION: NASAL SPRAY
     Route: 045
  4. NEURONTIN [Concomitant]
     Route: 048
  5. ZOLOFT [Concomitant]
  6. ADVAIR [Concomitant]
     Route: 055
  7. EXFORGE [Concomitant]
     Route: 048
  8. PROVENTIL [Concomitant]
     Route: 055

REACTIONS (4)
  - Myocardial infarction [Fatal]
  - Atrial fibrillation [Recovered/Resolved]
  - Intestinal obstruction [Recovered/Resolved]
  - Off label use [Unknown]
